FAERS Safety Report 11420619 (Version 1)
Quarter: 2015Q3

REPORT INFORMATION
  Report Type: Spontaneous
  Country: AU (occurrence: AU)
  Receive Date: 20150826
  Receipt Date: 20150826
  Transmission Date: 20151125
  Serious: Yes (Hospitalization)
  Sender: FDA-Public Use
  Company Number: AU-BAYER-2015-407409

PATIENT
  Age: 55 Year
  Sex: Male
  Weight: 100 kg

DRUGS (12)
  1. BAYER ASPIRIN [Interacting]
     Active Substance: ASPIRIN
  2. METFORMIN [Concomitant]
     Active Substance: METFORMIN HYDROCHLORIDE
  3. CARVEDILOL. [Concomitant]
     Active Substance: CARVEDILOL
  4. RAMIPRIL. [Concomitant]
     Active Substance: RAMIPRIL
  5. OMEPRAZOLE. [Concomitant]
     Active Substance: OMEPRAZOLE
  6. FENOFIBRATE. [Concomitant]
     Active Substance: FENOFIBRATE
  7. EZETIMIBE. [Concomitant]
     Active Substance: EZETIMIBE
  8. WARFARIN [Interacting]
     Active Substance: WARFARIN
  9. GLICLAZIDE [Concomitant]
     Active Substance: GLICLAZIDE
  10. TRAMADOL. [Concomitant]
     Active Substance: TRAMADOL
  11. DULOXETINE. [Concomitant]
     Active Substance: DULOXETINE
  12. PROTHROMBINEX-VF [Suspect]
     Active Substance: ANTITHROMBIN III HUMAN\COAGULATION FACTOR IX HUMAN\COAGULATION FACTOR VII HUMAN\COAGULATION FACTOR X HUMAN\PROTEIN C\PROTEIN S HUMAN\PROTHROMBIN
     Indication: RECTAL HAEMORRHAGE
     Dosage: 50 IU/KG, UNK

REACTIONS (8)
  - Rectal haemorrhage [Recovered/Resolved]
  - Melaena [Recovered/Resolved]
  - Upper gastrointestinal haemorrhage [Recovered/Resolved]
  - Labelled drug-drug interaction medication error [None]
  - Haematemesis [Recovered/Resolved]
  - Splenic infarction [Recovered/Resolved]
  - Abdominal pain upper [Recovered/Resolved]
  - Myocardial infarction [Recovered/Resolved]
